FAERS Safety Report 5105820-6 (Version None)
Quarter: 2006Q3

REPORT INFORMATION
  Report Type: 
  Country: None (occurrence: None)
  Receive Date: 20060912
  Receipt Date: 20060831
  Transmission Date: 20061208
  Serious: Yes (Hospitalization)
  Sender: FDA-Public Use
  Company Number: 229394

PATIENT
  Age: 37 Year
  Sex: Female

DRUGS (3)
  1. HERCEPTIN [Suspect]
     Indication: BREAST CANCER
     Dosage: 2 MG/KG 1/WEEK, INTRAVENOUS
     Route: 042
     Dates: start: 20060701
  2. TAXOTERE [Suspect]
     Indication: BREAST CANCER
     Dosage: 75 MG/M2, Q3W, INTRAVENOUS
     Route: 042
     Dates: start: 20060201
  3. CARBOPLATIN [Suspect]
     Indication: BREAST CANCER
     Dosage: 6 AUC, Q3W, INTRAVENOUS
     Route: 042
     Dates: start: 20060201

REACTIONS (2)
  - FEBRILE NEUTROPENIA [None]
  - VOMITING [None]
